FAERS Safety Report 8179036-3 (Version None)
Quarter: 2012Q1

REPORT INFORMATION
  Report Type: 
  Country: None (occurrence: None)
  Receive Date: 20120302
  Receipt Date: 20120222
  Transmission Date: 20120608
  Serious: Yes (Hospitalization)
  Sender: FDA-Public Use
  Company Number: US-ROCHE-1042343

PATIENT
  Sex: Female

DRUGS (8)
  1. VENTOLIN HFA [Concomitant]
     Route: 065
  2. NEXIUM [Concomitant]
     Route: 065
  3. ADVAIR DISKUS 100/50 [Concomitant]
     Dosage: DOSE: 250/50
  4. PRILOSEC [Concomitant]
     Indication: GASTROOESOPHAGEAL REFLUX DISEASE
  5. VASERETIC [Concomitant]
     Dosage: DOSE: 10/25
  6. BONIVA [Suspect]
     Indication: OSTEOARTHRITIS
     Dates: start: 20061203
  7. SPIRIVA [Concomitant]
     Route: 065
  8. MOBIC [Concomitant]
     Indication: OSTEOARTHRITIS

REACTIONS (2)
  - FEMUR FRACTURE [None]
  - FALL [None]
